FAERS Safety Report 20177359 (Version 1)
Quarter: 2021Q4

REPORT INFORMATION
  Report Type: Spontaneous
  Country: US (occurrence: None)
  Receive Date: 20211212
  Receipt Date: 20211212
  Transmission Date: 20220303
  Serious: Yes (Other)
  Sender: FDA-Public Use
  Company Number: None

PATIENT
  Age: 47 Year
  Sex: Female
  Weight: 54.9 kg

DRUGS (1)
  1. NALOXONE [Suspect]
     Active Substance: NALOXONE
     Indication: Drug dependence
     Dosage: OTHER FREQUENCY : 0.4 MG / HOUR;?
     Dates: start: 20211212, end: 20211212

REACTIONS (1)
  - Hypotension [None]

NARRATIVE: CASE EVENT DATE: 20211212
